FAERS Safety Report 15088566 (Version 5)
Quarter: 2018Q4

REPORT INFORMATION
  Report Type: Report from Study
  Country: BR (occurrence: BR)
  Receive Date: 20180629
  Receipt Date: 20181220
  Transmission Date: 20190204
  Serious: Yes (Hospitalization, Other)
  Sender: FDA-Public Use
  Company Number: BR-ELI_LILLY_AND_COMPANY-BR201805011738

PATIENT
  Age: 66 Year
  Sex: Female

DRUGS (3)
  1. TERIPARATIDE [Suspect]
     Active Substance: TERIPARATIDE
     Dosage: UNK, UNKNOWN
     Route: 065
     Dates: start: 20180401
  2. TERIPARATIDE [Suspect]
     Active Substance: TERIPARATIDE
     Indication: OSTEOPOROSIS
     Dosage: UNK UNK, DAILY
     Route: 065
     Dates: start: 20150401
  3. NADOLOL. [Concomitant]
     Active Substance: NADOLOL
     Indication: ARRHYTHMIA
     Dosage: UNK
     Dates: start: 201707

REACTIONS (10)
  - Hypocitraturia [Unknown]
  - Urinary tract infection [Unknown]
  - Calculus urinary [Unknown]
  - Device related infection [Unknown]
  - Dizziness [Unknown]
  - Calcium metabolism disorder [Unknown]
  - Fall [Unknown]
  - Nephrolithiasis [Unknown]
  - Osteoarthritis [Unknown]
  - Complication associated with device [Unknown]

NARRATIVE: CASE EVENT DATE: 201506
